FAERS Safety Report 19111654 (Version 1)
Quarter: 2021Q2

REPORT INFORMATION
  Report Type: Spontaneous
  Country: CN (occurrence: CN)
  Receive Date: 20210408
  Receipt Date: 20210408
  Transmission Date: 20210717
  Serious: Yes (Hospitalization, Other)
  Sender: FDA-Public Use
  Company Number: CN-PFIZER INC-2021355363

PATIENT
  Age: 26 Year
  Sex: Female
  Weight: 44 kg

DRUGS (9)
  1. LINEZOLID. [Suspect]
     Active Substance: LINEZOLID
     Indication: ANTI-INFECTIVE THERAPY
  2. LINEZOLID. [Suspect]
     Active Substance: LINEZOLID
     Indication: ANTI-INFECTIVE THERAPY
  3. LINEZOLID. [Suspect]
     Active Substance: LINEZOLID
     Indication: PNEUMONIA
     Dosage: 0.6 G, 2X/DAY
     Route: 041
     Dates: start: 20210102, end: 20210120
  4. AMIKACIN SULFATE. [Concomitant]
     Active Substance: AMIKACIN SULFATE
     Indication: PNEUMONIA
     Dosage: 0.300 G, 2X/DAY
     Route: 041
     Dates: start: 20210102, end: 20210120
  5. LINEZOLID. [Suspect]
     Active Substance: LINEZOLID
     Indication: PNEUMONIA
     Dosage: 0.6 G, 2X/DAY
     Route: 048
     Dates: start: 20210120
  6. LINEZOLID. [Suspect]
     Active Substance: LINEZOLID
     Indication: MYCOBACTERIUM ABSCESSUS INFECTION
  7. LINEZOLID. [Suspect]
     Active Substance: LINEZOLID
     Indication: MYCOBACTERIUM ABSCESSUS INFECTION
  8. AZITHROMYCIN ANHYDROUS. [Concomitant]
     Active Substance: AZITHROMYCIN ANHYDROUS
     Indication: PNEUMONIA
     Dosage: 500.000 MG, 1X/DAY
     Route: 048
     Dates: start: 20210121, end: 20210320
  9. AZITHROMYCIN ANHYDROUS. [Concomitant]
     Active Substance: AZITHROMYCIN ANHYDROUS
     Indication: PNEUMONIA
     Dosage: 0.5 G, 1X/DAY
     Route: 041
     Dates: start: 20210102, end: 20210120

REACTIONS (4)
  - White blood cell count decreased [Unknown]
  - Anaemia [Recovering/Resolving]
  - Haemoglobin decreased [Recovering/Resolving]
  - Neutrophil count decreased [Recovering/Resolving]

NARRATIVE: CASE EVENT DATE: 20210320
